FAERS Safety Report 4629259-2 (Version None)
Quarter: 2005Q2

REPORT INFORMATION
  Report Type: 
  Country: None (occurrence: None)
  Receive Date: 20050405
  Receipt Date: 20050324
  Transmission Date: 20051028
  Serious: Yes (Other)
  Sender: FDA-Public Use
  Company Number: S05-USA-01134-01

PATIENT

DRUGS (2)
  1. LEXAPRO [Suspect]
  2. DEMEROL [Suspect]

REACTIONS (1)
  - CONVULSION [None]
